FAERS Safety Report 6506342-8 (Version None)
Quarter: 2009Q4

REPORT INFORMATION
  Report Type: 
  Country: None (occurrence: None)
  Receive Date: 20091218
  Receipt Date: 20091207
  Transmission Date: 20100525
  Serious: Yes (Hospitalization, Other)
  Sender: FDA-Public Use
  Company Number: US-ELI_LILLY_AND_COMPANY-US200910006720

PATIENT
  Sex: Female

DRUGS (4)
  1. CYMBALTA [Suspect]
     Indication: MYOFASCIAL PAIN SYNDROME
     Dosage: 30 MG, UNK
     Dates: start: 20080901, end: 20080901
  2. CYMBALTA [Suspect]
     Dosage: 30 MG, UNK
     Dates: start: 20090301, end: 20090701
  3. CYMBALTA [Suspect]
     Dosage: 60 MG, UNK
     Dates: start: 20090801, end: 20091101
  4. TRAMADOL HCL [Concomitant]
     Dosage: 1 D/F, UNK

REACTIONS (16)
  - ANTINUCLEAR ANTIBODY POSITIVE [None]
  - ANXIETY [None]
  - BURSITIS [None]
  - CONVERSION DISORDER [None]
  - DEPRESSION [None]
  - DRUG INTERACTION [None]
  - GENERALISED ANXIETY DISORDER [None]
  - HYPERVENTILATION [None]
  - MUSCLE SPASMS [None]
  - MUSCULOSKELETAL PAIN [None]
  - MYOFASCIAL PAIN SYNDROME [None]
  - OFF LABEL USE [None]
  - OSTEOARTHRITIS [None]
  - RHEUMATOID ARTHRITIS [None]
  - SEROTONIN SYNDROME [None]
  - SYNCOPE [None]
